FAERS Safety Report 13381695 (Version 1)
Quarter: 2017Q1

REPORT INFORMATION
  Report Type: Spontaneous
  Country: IT (occurrence: IT)
  Receive Date: 20170329
  Receipt Date: 20170329
  Transmission Date: 20170429
  Serious: Yes (Other)
  Sender: FDA-Public Use
  Company Number: PHHY2017IT042673

PATIENT
  Age: 32 Year
  Sex: Female

DRUGS (2)
  1. METFORMIN [Suspect]
     Active Substance: METFORMIN HYDROCHLORIDE
     Indication: DIABETES MELLITUS
     Dosage: UNK
     Route: 065
  2. CLOZAPINE. [Interacting]
     Active Substance: CLOZAPINE
     Indication: PSYCHOTIC DISORDER
     Dosage: 400 MG, QD
     Route: 048
     Dates: start: 20161001

REACTIONS (2)
  - Drug interaction [Unknown]
  - Electrolyte imbalance [Unknown]

NARRATIVE: CASE EVENT DATE: 20170301
